FAERS Safety Report 13701428 (Version 1)
Quarter: 2017Q2

REPORT INFORMATION
  Report Type: Spontaneous
  Country: US (occurrence: US)
  Receive Date: 20170628
  Receipt Date: 20170628
  Transmission Date: 20170830
  Serious: Yes (Life-Threatening, Hospitalization)
  Sender: FDA-Public Use
  Company Number: None

PATIENT
  Age: 14 Year
  Sex: Male
  Weight: 76 kg

DRUGS (4)
  1. FOLIC ACID. [Concomitant]
     Active Substance: FOLIC ACID
  2. JADENU [Suspect]
     Active Substance: DEFERASIROX
     Indication: IRON OVERLOAD
  3. JADENU [Suspect]
     Active Substance: DEFERASIROX
     Indication: TRANSFUSION RELATED COMPLICATION
  4. ASPIRIN. [Concomitant]
     Active Substance: ASPIRIN

REACTIONS (6)
  - Hyperammonaemia [None]
  - Lactic acidosis [None]
  - Transaminases increased [None]
  - Diarrhoea [None]
  - Encephalopathy [None]
  - Hepatic function abnormal [None]

NARRATIVE: CASE EVENT DATE: 20161103
